FAERS Safety Report 20764147 (Version 2)
Quarter: 2022Q2

REPORT INFORMATION
  Report Type: Spontaneous
  Country: US (occurrence: US)
  Receive Date: 20220428
  Receipt Date: 20220624
  Transmission Date: 20220721
  Serious: Yes (Hospitalization)
  Sender: FDA-Public Use
  Company Number: US-MACROGENICS-2022000105

PATIENT
  Age: 53 Year
  Sex: Female

DRUGS (4)
  1. MARGENZA [Suspect]
     Active Substance: MARGETUXIMAB-CMKB
     Indication: HER2 positive breast cancer
     Dosage: 1000 MILLIGRAM, Q3WEEKS
     Route: 042
     Dates: start: 20220228, end: 20220228
  2. MARGENZA [Suspect]
     Active Substance: MARGETUXIMAB-CMKB
     Dosage: 1000 MILLIGRAM, Q3WEEKS
     Route: 042
     Dates: start: 20220321, end: 20220321
  3. MARGENZA [Suspect]
     Active Substance: MARGETUXIMAB-CMKB
     Dosage: 1000 MILLIGRAM, Q3WEEKS
     Route: 042
     Dates: start: 20220411, end: 20220411
  4. ERIBULIN [Concomitant]
     Active Substance: ERIBULIN
     Indication: HER2 positive breast cancer
     Dosage: 2.3 MILLIGRAM D1 AND D15
     Route: 042
     Dates: start: 20220228

REACTIONS (2)
  - Anaphylactic reaction [Recovered/Resolved]
  - Urticaria [Unknown]

NARRATIVE: CASE EVENT DATE: 20220411
